FAERS Safety Report 22835841 (Version 3)
Quarter: 2023Q4

REPORT INFORMATION
  Report Type: Spontaneous
  Country: US (occurrence: US)
  Receive Date: 20230818
  Receipt Date: 20231017
  Transmission Date: 20240110
  Serious: Yes (Life-Threatening, Other)
  Sender: FDA-Public Use
  Company Number: US-UCBSA-2023041030

PATIENT
  Age: 11 Year
  Sex: Female
  Weight: 37.3 kg

DRUGS (7)
  1. NAYZILAM [Suspect]
     Active Substance: MIDAZOLAM
     Indication: Seizure
     Dosage: UNK
  2. NAYZILAM [Suspect]
     Active Substance: MIDAZOLAM
     Indication: Seizure cluster
     Dosage: 1 DOSAGE FORM, ONCE DAILY (QD), 1 SPRAY, 1 TIME
     Route: 045
     Dates: start: 202303, end: 202303
  3. NAYZILAM [Suspect]
     Active Substance: MIDAZOLAM
     Dosage: 1 DOSAGE FORM, ONCE DAILY (QD), 1 SPRAY, 1 TIME
     Route: 045
     Dates: start: 20230423, end: 20230423
  4. LAMOTRIGINE [Concomitant]
     Active Substance: LAMOTRIGINE
     Indication: Epilepsy
     Dosage: 50 MILLIGRAM, 2X/DAY (BID) (100 MILLIGRAM HALF TABLET)
     Dates: start: 20220919
  5. LAMOTRIGINE [Concomitant]
     Active Substance: LAMOTRIGINE
     Indication: Seizure
  6. BACLOFEN [Concomitant]
     Active Substance: BACLOFEN
     Indication: Muscle spasticity
     Dosage: UNK (5 MG/ML), 1.59 ML IN AM, AFTERNOON AND AT 3 PM (TID)
     Dates: start: 201508
  7. DIAZEPAM [Concomitant]
     Active Substance: DIAZEPAM
     Indication: Muscle spasms
     Dosage: 0.2 MILLILITER, 3X/DAY (TID), NOT AT SAME TIME AS NAYZILAM

REACTIONS (5)
  - Loss of consciousness [Recovered/Resolved]
  - Dyspnoea [Recovered/Resolved]
  - Oropharyngeal discomfort [Recovered/Resolved]
  - Nasal discomfort [Recovered/Resolved]
  - Rash erythematous [Recovered/Resolved]

NARRATIVE: CASE EVENT DATE: 20230301
